FAERS Safety Report 26081205 (Version 1)
Quarter: 2025Q4

REPORT INFORMATION
  Report Type: Spontaneous
  Country: US (occurrence: US)
  Receive Date: 20251124
  Receipt Date: 20251124
  Transmission Date: 20260118
  Serious: Yes (Hospitalization)
  Sender: BOEHRINGER INGELHEIM
  Company Number: US-Komodo Health-a23aa00000C7qsbAAB

PATIENT
  Sex: Male

DRUGS (2)
  1. OFEV [Suspect]
     Active Substance: NINTEDANIB
     Indication: Interstitial lung disease
     Dates: start: 202203
  2. OFEV [Suspect]
     Active Substance: NINTEDANIB

REACTIONS (6)
  - Diarrhoea [Not Recovered/Not Resolved]
  - Liver function test increased [Recovering/Resolving]
  - Blood creatinine increased [Unknown]
  - Abdominal pain [Unknown]
  - Renal pain [Unknown]
  - Blood alkaline phosphatase increased [Unknown]

NARRATIVE: CASE EVENT DATE: 20220101
